FAERS Safety Report 25864698 (Version 1)
Quarter: 2025Q3

REPORT INFORMATION
  Report Type: Spontaneous
  Country: US (occurrence: None)
  Receive Date: 20250929
  Receipt Date: 20250929
  Transmission Date: 20251021
  Serious: No
  Sender: FDA-CTU
  Company Number: None

PATIENT
  Sex: Female

DRUGS (3)
  1. TEMOZOLOMIDE [Suspect]
     Active Substance: TEMOZOLOMIDE
     Indication: Malignant melanoma
     Route: 048
     Dates: start: 20250616
  2. DEXAMETHASONE [Suspect]
     Active Substance: DEXAMETHASONE
  3. TEMOZOLOMIDE [Suspect]
     Active Substance: TEMOZOLOMIDE
     Indication: Malignant melanoma
     Route: 048
     Dates: start: 20250616

REACTIONS (3)
  - Seizure [None]
  - Brain oedema [None]
  - Withdrawal syndrome [None]
